FAERS Safety Report 9565517 (Version 2)
Quarter: 2013Q4

REPORT INFORMATION
  Report Type: Spontaneous
  Country: US (occurrence: US)
  Receive Date: 20130930
  Receipt Date: 20131126
  Transmission Date: 20140711
  Serious: Yes (Hospitalization)
  Sender: FDA-Public Use
  Company Number: US-TARO-2013P1019602

PATIENT
  Age: 19 Year
  Sex: Female
  Weight: 97.07 kg

DRUGS (7)
  1. CLINDAMYCIN PHOSPHATE AND BENZOYL PEROXIDE GEL 1.2%/2.5% [Suspect]
     Indication: ACNE
     Route: 061
     Dates: start: 20130626, end: 20130916
  2. MIRENA [Concomitant]
     Route: 015
     Dates: start: 201105
  3. PROZAC [Concomitant]
     Route: 048
     Dates: start: 20130909, end: 20130915
  4. PROZAC [Concomitant]
     Route: 048
     Dates: start: 20130916, end: 20130919
  5. PROZAC [Concomitant]
     Route: 048
     Dates: start: 20130919
  6. KLONOPIN [Concomitant]
     Route: 048
     Dates: start: 20130909, end: 20130916
  7. FIORICET [Concomitant]
     Route: 048
     Dates: start: 20130909, end: 20130919

REACTIONS (2)
  - Depression [Recovered/Resolved]
  - Anxiety [Recovered/Resolved]
